FAERS Safety Report 5534341-1 (Version None)
Quarter: 2007Q4

REPORT INFORMATION
  Report Type: 
  Country: None (occurrence: None)
  Receive Date: 20071205
  Receipt Date: 20071203
  Transmission Date: 20080405
  Serious: Yes (Life-Threatening, Hospitalization)
  Sender: FDA-Public Use
  Company Number: PHBS2007JP19840

PATIENT
  Age: 45 Year
  Sex: Male
  Weight: 97 kg

DRUGS (11)
  1. VALSARTAN [Suspect]
     Indication: HYPERTENSION
     Dosage: 40 MG/DAY
     Route: 048
  2. TILISOLOL [Concomitant]
     Indication: HYPERTENSION
     Dosage: 10 MG/DAY
     Route: 048
  3. BENIDIPINE [Concomitant]
     Indication: HYPERTENSION
     Dosage: 4 MG/DAY
     Route: 048
  4. TRICHLORMETHIAZIDE [Concomitant]
     Indication: HYPERTENSION
     Dosage: 2 MG/DAY
     Route: 048
  5. REMIFENTANIL [Suspect]
     Dosage: 0.05 UG/KG/MIN
  6. OXYGEN [Concomitant]
  7. LIDOCAINE [Concomitant]
  8. PROPOFOL [Concomitant]
     Dosage: 120 MG/DAY
  9. VECURONIUM BROMIDE [Concomitant]
  10. SEVOFLURANE [Concomitant]
     Dosage: 2%
  11. SEVOFLURANE [Concomitant]
     Dosage: 0,5%

REACTIONS (7)
  - BLOOD PRESSURE DECREASED [None]
  - CARDIAC ARREST [None]
  - CARDIAC MASSAGE [None]
  - HEART RATE DECREASED [None]
  - INTUBATION [None]
  - MITRAL VALVE INCOMPETENCE [None]
  - MYOCARDIAL ISCHAEMIA [None]
